FAERS Safety Report 23269355 (Version 2)
Quarter: 2023Q4

REPORT INFORMATION
  Report Type: Report from Study
  Country: DE (occurrence: DE)
  Receive Date: 20231207
  Receipt Date: 20231219
  Transmission Date: 20240110
  Serious: Yes (Other)
  Sender: FDA-Public Use
  Company Number: DE-CELLTRION INC.-2023DE018249

PATIENT

DRUGS (25)
  1. TRASTUZUMAB [Suspect]
     Active Substance: TRASTUZUMAB
     Indication: Breast cancer
     Dosage: 399 MG (LAST DOSE PRIOR TO EVENT 399MG)
     Route: 065
     Dates: start: 20230817
  2. TRASTUZUMAB [Suspect]
     Active Substance: TRASTUZUMAB
     Dosage: 315 MG (ON 28/SEP/2023, SHE RECEIVED MOST RECENT DOSE OF TRASTUZMAB 315 MG)
     Route: 065
     Dates: start: 20230928
  3. CARBOPLATIN [Suspect]
     Active Substance: CARBOPLATIN
     Indication: Breast cancer
     Dosage: ON 28/SEP/2023, SHE RECEIVED MOST RECENT DOSE OF CARBOPLATIN 640 MG
     Route: 065
     Dates: start: 20230817
  4. CARBOPLATIN [Suspect]
     Active Substance: CARBOPLATIN
     Dosage: 690 MG
     Route: 065
     Dates: start: 20230907
  5. PERJETA [Suspect]
     Active Substance: PERTUZUMAB
     Indication: Breast cancer
     Dosage: 840 MG (LAST DOSE PRIOR TO EVENT :840MG)
     Route: 065
     Dates: start: 20230817
  6. PERJETA [Suspect]
     Active Substance: PERTUZUMAB
     Dosage: 420 MG (ON 07/SEP/2023, SHE RECEIVED MOST RECENT DOSE OF PERTUZUMAB 420 MG)
     Route: 065
     Dates: start: 20230928
  7. DOCETAXEL [Suspect]
     Active Substance: DOCETAXEL\DOCETAXEL ANHYDROUS
     Indication: Breast cancer
     Dosage: 116 MG (LAST DOSE PRIOR TO EVENT :116MG)
     Route: 065
     Dates: start: 20230817
  8. DOCETAXEL [Suspect]
     Active Substance: DOCETAXEL\DOCETAXEL ANHYDROUS
     Dosage: 118 MG (ON 07/SEP/2023, SHE RECEIVED MOST RECENT DOSE OF DOCETAXEL)
     Route: 065
     Dates: start: 20230928
  9. NEULASTA [Concomitant]
     Active Substance: PEGFILGRASTIM
     Dosage: 6 MG
     Dates: start: 20230818
  10. AKYNZEO (NETUPITANT\PALONOSETRON) [Concomitant]
     Active Substance: NETUPITANT\PALONOSETRON
     Dosage: 300 MG
     Dates: start: 20230817
  11. ENOXAPARIN SODIUM [Concomitant]
     Active Substance: ENOXAPARIN SODIUM
     Dosage: UNK, QD
     Dates: start: 20230817, end: 20230826
  12. LOPERAMIDE [Concomitant]
     Active Substance: LOPERAMIDE
     Dosage: 2 MG
     Dates: start: 20230821, end: 20230827
  13. LOPERAMIDE [Concomitant]
     Active Substance: LOPERAMIDE
     Dosage: 4 MG
     Dates: start: 20231001
  14. LOPERAMIDE [Concomitant]
     Active Substance: LOPERAMIDE
     Dosage: 4 MG
     Dates: start: 20230910, end: 20230929
  15. DIMETHINDENE MALEATE [Concomitant]
     Active Substance: DIMETHINDENE MALEATE
     Dosage: 4 MG
     Dates: start: 20230817
  16. DEXAMETHASONE [Concomitant]
     Active Substance: DEXAMETHASONE
     Dosage: 8 MG
     Dates: start: 20230817
  17. DEXAMETHASONE [Concomitant]
     Active Substance: DEXAMETHASONE
     Dosage: 8 MG
     Dates: start: 20230817
  18. DEXAMETHASONE [Concomitant]
     Active Substance: DEXAMETHASONE
     Dosage: UNK
     Dates: start: 20230818
  19. DEXAMETHASONE [Concomitant]
     Active Substance: DEXAMETHASONE
     Dosage: 8 MG
     Dates: start: 20230819
  20. DEXAMETHASONE [Concomitant]
     Active Substance: DEXAMETHASONE
     Dosage: 16 MG
     Dates: start: 20230906
  21. VITAMIN D3 [Concomitant]
     Active Substance: CHOLECALCIFEROL
     Dosage: DOSE: 3000 30000 IE, EVERY 1 WEEK
     Dates: start: 20230908
  22. HYSAN [XYLOMETAZOLINE HYDROCHLORIDE] [Concomitant]
     Dosage: DOSE: 1 HUB, EVERY 0.33 DAY
     Dates: start: 20230908
  23. DEXPANTHENOL [Concomitant]
     Active Substance: DEXPANTHENOL
     Dosage: DOSE: 1 CM, EVERY 1 DAY
     Dates: start: 20230908
  24. MCP [Concomitant]
     Active Substance: METOCLOPRAMIDE HYDROCHLORIDE
     Dosage: 10 MG, 1 EVERY DAY
     Dates: start: 20231007, end: 20231007
  25. ALLIUM CEPA [Concomitant]
     Active Substance: ONION
     Dosage: DOSE: 5 GLOBULES, EVERY 0.33 DAY
     Dates: start: 20230908

REACTIONS (16)
  - Polyneuropathy [Recovered/Resolved]
  - Anal haemorrhage [Not Recovered/Not Resolved]
  - Flushing [Recovered/Resolved]
  - Alopecia [Not Recovered/Not Resolved]
  - Asthenia [Recovered/Resolved]
  - Decreased appetite [Not Recovered/Not Resolved]
  - Diarrhoea [Recovered/Resolved]
  - Dry skin [Not Recovered/Not Resolved]
  - Dysgeusia [Not Recovered/Not Resolved]
  - Dyspepsia [Recovered/Resolved]
  - Epistaxis [Recovered/Resolved]
  - Oedema peripheral [Recovered/Resolved]
  - Nausea [Recovered/Resolved]
  - Rash [Not Recovered/Not Resolved]
  - Vomiting [Recovered/Resolved]
  - Intentional product use issue [Unknown]

NARRATIVE: CASE EVENT DATE: 20230818
